FAERS Safety Report 15566654 (Version 1)
Quarter: 2018Q4

REPORT INFORMATION
  Report Type: Spontaneous
  Country: FR (occurrence: FR)
  Receive Date: 20181030
  Receipt Date: 20181030
  Transmission Date: 20190205
  Serious: Yes (Death, Hospitalization)
  Sender: FDA-Public Use
  Company Number: FR-TEVA-2018-FR-968963

PATIENT
  Age: 37 Year
  Sex: Male
  Weight: 91 kg

DRUGS (7)
  1. DESLORATADINE. [Suspect]
     Active Substance: DESLORATADINE
     Indication: SUICIDE ATTEMPT
     Route: 048
     Dates: start: 20180808, end: 20180808
  2. ALPRAZOLAM. [Suspect]
     Active Substance: ALPRAZOLAM
     Indication: SUICIDE ATTEMPT
     Route: 048
     Dates: start: 20180808, end: 20180808
  3. TRIMEBUTINE [Suspect]
     Active Substance: TRIMEBUTINE
     Indication: SUICIDE ATTEMPT
     Route: 048
     Dates: start: 20180808, end: 20180808
  4. PREDNISONE. [Suspect]
     Active Substance: PREDNISONE
     Indication: SUICIDE ATTEMPT
     Route: 048
     Dates: start: 20180808, end: 20180808
  5. NUROFEN 400 MG, COMPRIM? ENROB? [Suspect]
     Active Substance: IBUPROFEN
     Indication: SUICIDE ATTEMPT
     Route: 048
     Dates: start: 20180808, end: 20180808
  6. COLCHICINE. [Suspect]
     Active Substance: COLCHICINE
     Indication: SUICIDE ATTEMPT
     Route: 048
     Dates: start: 20180808, end: 20180808
  7. PAROXETINE. [Suspect]
     Active Substance: PAROXETINE
     Indication: SUICIDE ATTEMPT
     Route: 048
     Dates: start: 20180808, end: 20180808

REACTIONS (3)
  - Multiple organ dysfunction syndrome [Fatal]
  - Cardiogenic shock [Fatal]
  - Vasoplegia syndrome [Fatal]

NARRATIVE: CASE EVENT DATE: 20180810
